FAERS Safety Report 24720504 (Version 1)
Quarter: 2024Q4

REPORT INFORMATION
  Report Type: Other
  Country: US (occurrence: US)
  Receive Date: 20241211
  Receipt Date: 20241211
  Transmission Date: 20250114
  Serious: Yes (Death)
  Sender: ANI
  Company Number: US-ANIPHARMA-013095

PATIENT
  Sex: Female

DRUGS (1)
  1. LEUCOVORIN [Suspect]
     Active Substance: LEUCOVORIN\LEUCOVORIN CALCIUM
     Indication: Toxicity to various agents

REACTIONS (1)
  - Drug ineffective [Fatal]
